FAERS Safety Report 5023705-0 (Version None)
Quarter: 2006Q2

REPORT INFORMATION
  Report Type: 
  Country: None (occurrence: None)
  Receive Date: 20060428
  Receipt Date: 20050831
  Transmission Date: 20061013
  Serious: Yes (Other)
  Sender: FDA-Public Use
  Company Number: US-2005-009954

PATIENT
  Age: 76 Year
  Sex: Male
  Weight: 95.2 kg

DRUGS (3)
  1. LEUKINE [Suspect]
     Dosage: 250 UH/M2, 1X/DAY
     Dates: start: 20050301, end: 20050313
  2. CLARITIN [Suspect]
     Indication: URTICARIA
     Dosage: 2 TAB(S), 1X/DAY
     Dates: start: 20050310
  3. ASPIRIN [Concomitant]

REACTIONS (2)
  - TACHYCARDIA [None]
  - URTICARIA [None]
